FAERS Safety Report 7338330-6 (Version None)
Quarter: 2011Q1

REPORT INFORMATION
  Report Type: 
  Country: None (occurrence: None)
  Receive Date: 20110308
  Receipt Date: 20110302
  Transmission Date: 20110831
  Serious: Yes (Hospitalization)
  Sender: FDA-Public Use
  Company Number: US-GENZYME-CLOF-1001390

PATIENT
  Sex: Female
  Weight: 25.4 kg

DRUGS (6)
  1. CLOLAR [Suspect]
     Dosage: 52 MG/M2, QDX5 ON DAYS 1-5
     Route: 042
     Dates: start: 20101231, end: 20110104
  2. CYTARABINE [Suspect]
     Indication: ACUTE MYELOID LEUKAEMIA
     Dosage: 70 MG, ONCE ON DAY 0
     Route: 037
     Dates: start: 20101210, end: 20101210
  3. CYTARABINE [Suspect]
     Dosage: 1000 MG/M2, QDX5 ON DAYS 1-5
     Route: 065
     Dates: start: 20101231, end: 20110104
  4. CLOLAR [Suspect]
     Indication: ACUTE MYELOID LEUKAEMIA
     Dosage: 52 MG/M2, QDX5 ON DAYS 1-5
     Route: 042
     Dates: start: 20101213, end: 20101217
  5. BACTRIM [Concomitant]
     Indication: ANTIFUNGAL PROPHYLAXIS
     Dosage: 50 MG, BID ON SATURDAYS AND SUNDAYS
     Route: 048
     Dates: start: 20101218
  6. CYTARABINE [Suspect]
     Dosage: 1000 MG/M2/DOSE ON DAYS 1-5 FOR 2 CYCLES
     Route: 065
     Dates: start: 20101213, end: 20101217

REACTIONS (8)
  - NEUTROPENIA [None]
  - NEUTROPENIC INFECTION [None]
  - LIPASE INCREASED [None]
  - DEVICE RELATED INFECTION [None]
  - PANCREATITIS [None]
  - HYPOXIA [None]
  - PNEUMONIA [None]
  - BLOOD AMYLASE INCREASED [None]
